FAERS Safety Report 5837295-3 (Version None)
Quarter: 2008Q3

REPORT INFORMATION
  Report Type: 
  Country: None (occurrence: None)
  Receive Date: 20080807
  Receipt Date: 20080729
  Transmission Date: 20090109
  Serious: Yes (Hospitalization, Other)
  Sender: FDA-Public Use
  Company Number: US-ELI_LILLY_AND_COMPANY-US200807005852

PATIENT
  Sex: Female
  Weight: 108.39 kg

DRUGS (12)
  1. BYETTA [Suspect]
     Indication: TYPE 2 DIABETES MELLITUS
     Dosage: 5 UG, 2/D
     Route: 058
     Dates: start: 20070101, end: 20080101
  2. BYETTA [Suspect]
     Dosage: 10 UG, 2/D
     Route: 058
     Dates: start: 20080101, end: 20080301
  3. BYETTA [Suspect]
     Dosage: 5 UG, 2/D
     Route: 058
     Dates: start: 20080711
  4. GLIPIZIDE [Concomitant]
     Indication: TYPE 2 DIABETES MELLITUS
     Dosage: 5 MG, 2/D
  5. LASIX [Concomitant]
     Dosage: 60 MG, DAILY (1/D)
  6. METOPROLOL SUCCINATE [Concomitant]
     Dosage: 200 MG, 2/D
  7. AMLODIPINE MALEATE/ BENAZEPRIL HYDROCHLORIDE [Concomitant]
     Dosage: UNK, DAILY (1/D)
  8. LEVOTHYROXINE SODIUM [Concomitant]
     Indication: THYROID DISORDER
     Dosage: 0.05 MG, EACH MORNING
  9. TRAMADOL HCL [Concomitant]
     Indication: OSTEOARTHRITIS
     Dosage: 50 MG, 2/D
  10. POTASSIUM CHLORIDE [Concomitant]
     Dosage: 10 MEQ, DAILY (1/D)
  11. WARFARIN SODIUM [Concomitant]
     Dosage: 2.5 MG, 2/W
  12. WARFARIN SODIUM [Concomitant]
     Dosage: 5 MG, 5/W

REACTIONS (11)
  - ABDOMINAL PAIN UPPER [None]
  - ANAEMIA [None]
  - ATRIAL FIBRILLATION [None]
  - CHEST PAIN [None]
  - DIARRHOEA [None]
  - DYSPNOEA [None]
  - NAUSEA [None]
  - NERVOUSNESS [None]
  - PANIC ATTACK [None]
  - VISUAL ACUITY REDUCED [None]
  - WEIGHT DECREASED [None]
